FAERS Safety Report 9417418 (Version 1)
Quarter: 2013Q3

REPORT INFORMATION
  Report Type: Spontaneous
  Country: DE (occurrence: None)
  Receive Date: 20130719
  Receipt Date: 20130719
  Transmission Date: 20140515
  Serious: Yes (Hospitalization)
  Sender: FDA-Public Use
  Company Number: AXC-2013-000326

PATIENT
  Age: 56 Year
  Sex: Female

DRUGS (1)
  1. PYLERA [Suspect]
     Indication: PRODUCT USED FOR UNKNOWN INDICATION
     Dates: start: 201303, end: 201303

REACTIONS (3)
  - Nausea [None]
  - Vomiting [None]
  - Dehydration [None]
